FAERS Safety Report 7570233-4 (Version None)
Quarter: 2011Q2

REPORT INFORMATION
  Report Type: 
  Country: None (occurrence: None)
  Receive Date: 20110624
  Receipt Date: 20110620
  Transmission Date: 20111010
  Serious: Yes (Life-Threatening, Hospitalization, Other)
  Sender: FDA-Public Use
  Company Number: AU-ASTRAZENECA-2011SE33288

PATIENT
  Age: 0 Day
  Sex: Male
  Weight: 3.6 kg

DRUGS (5)
  1. SEROQUEL XR [Suspect]
     Indication: BIPOLAR DISORDER
     Route: 064
     Dates: start: 20090101, end: 20100506
  2. LITHIUM CARBONATE [Concomitant]
     Indication: MOOD ALTERED
     Route: 064
     Dates: start: 20090101, end: 20100506
  3. TEGRETOL [Concomitant]
     Indication: EPILEPSY
     Route: 064
     Dates: start: 20090101, end: 20090101
  4. CENOVIS MULTIVITAMIN [Concomitant]
     Indication: PROPHYLAXIS OF NEURAL TUBE DEFECT
     Route: 064
     Dates: start: 20090101, end: 20100506
  5. FOLIC ACID [Concomitant]
     Indication: PROPHYLAXIS OF NEURAL TUBE DEFECT
     Route: 064
     Dates: start: 20090101, end: 20100506

REACTIONS (3)
  - MATERNAL DRUGS AFFECTING FOETUS [None]
  - CAESAREAN SECTION [None]
  - FOETAL DISTRESS SYNDROME [None]
